FAERS Safety Report 7026427-X (Version None)
Quarter: 2010Q4

REPORT INFORMATION
  Report Type: 
  Country: None (occurrence: None)
  Receive Date: 20101004
  Receipt Date: 20100927
  Transmission Date: 20110411
  Serious: Yes (Death, Hospitalization)
  Sender: FDA-Public Use
  Company Number: PHHY2010FR64285

PATIENT
  Sex: Female

DRUGS (21)
  1. ESIDRIX [Suspect]
     Dosage: 25 MG
     Route: 048
     Dates: start: 20100611, end: 20100626
  2. RISORDAN [Suspect]
     Dosage: 1 MG BY HOUR
     Route: 042
     Dates: start: 20100611, end: 20100615
  3. CLAMOXYL [Suspect]
     Indication: URINARY TRACT INFECTION
     Dosage: 1 G, TID
     Route: 048
     Dates: start: 20100604, end: 20100616
  4. CORDARONE [Suspect]
     Dosage: 200 MG DAILY
     Route: 048
     Dates: start: 20100604, end: 20100614
  5. CALCIPARINE [Suspect]
     Indication: INTERNATIONAL NORMALISED RATIO INCREASED
     Dosage: 1000 IU BY HOUR
     Route: 042
     Dates: start: 20100604, end: 20100626
  6. TEMERIT [Suspect]
     Dosage: 5 MG
     Route: 048
     Dates: start: 20100613, end: 20100626
  7. LOXEN [Concomitant]
     Dosage: 50 MG DAILY
     Dates: end: 20100617
  8. EUPRESSYL [Concomitant]
     Dosage: 60 MG
  9. LASIX [Concomitant]
     Dosage: 2 DF DAILY
  10. ARIMIDEX [Concomitant]
     Indication: BREAST CANCER
     Dosage: 1 MG DAILY
     Dates: end: 20100609
  11. PREVISCAN [Concomitant]
     Dosage: 0.75 DF DAILY
     Dates: end: 20100611
  12. LANTUS [Concomitant]
     Indication: TYPE 1 DIABETES MELLITUS
     Dosage: UNK
     Route: 058
     Dates: end: 20100626
  13. LEVOTHYROXINE SODIUM [Concomitant]
     Indication: HYPOTHYROIDISM
     Dosage: 250 MCG DAILY
     Dates: end: 20100626
  14. NEXIUM [Concomitant]
     Dosage: UNK
     Dates: start: 20100604, end: 20100607
  15. ALDACTONE [Concomitant]
     Dosage: UNK
     Dates: end: 20100604
  16. ATARAX [Concomitant]
     Dosage: 1 DF DAILY
     Dates: end: 20100626
  17. ALPRAZOLAM [Concomitant]
     Dosage: 0.25 MG DAILY
     Dates: end: 20100603
  18. KARDEGIC [Concomitant]
     Dosage: 75 MG DAILY
     Dates: end: 20100603
  19. SEROPLEX [Concomitant]
     Dosage: 10 MG DAILY
     Dates: end: 20100603
  20. ZOLPIDEM TARTRATE [Concomitant]
     Dosage: 1 DF DAILY
     Dates: end: 20100603
  21. VALSARTAN  AND HYDROCHLOROTHIAZIDE [Concomitant]
     Dosage: 1 DF DAILY
     Dates: end: 20100603

REACTIONS (3)
  - HEPARIN-INDUCED THROMBOCYTOPENIA [None]
  - RENAL FAILURE [None]
  - RESPIRATORY DISTRESS [None]
